FAERS Safety Report 18952423 (Version 1)
Quarter: 2021Q1

REPORT INFORMATION
  Report Type: Spontaneous
  Country: US (occurrence: US)
  Receive Date: 20210301
  Receipt Date: 20210301
  Transmission Date: 20210420
  Serious: Yes (Other)
  Sender: FDA-Public Use
  Company Number: US-BIOGEN-2021BI00982810

PATIENT
  Sex: Male

DRUGS (1)
  1. TECFIDERA [Suspect]
     Active Substance: DIMETHYL FUMARATE
     Indication: MULTIPLE SCLEROSIS
     Route: 065
     Dates: start: 20200204

REACTIONS (5)
  - Gait disturbance [Unknown]
  - Confusional state [Unknown]
  - Clumsiness [Unknown]
  - Brain oedema [Unknown]
  - Multiple sclerosis relapse [Unknown]
